FAERS Safety Report 7650858-8 (Version None)
Quarter: 2011Q3

REPORT INFORMATION
  Report Type: 
  Country: None (occurrence: None)
  Receive Date: 20110802
  Receipt Date: 20110720
  Transmission Date: 20111222
  Serious: Yes (Hospitalization, Other)
  Sender: FDA-Public Use
  Company Number: US-ASTRAZENECA-2007UW20606

PATIENT
  Age: 13857 Day
  Sex: Female
  Weight: 58.1 kg

DRUGS (22)
  1. LEXAPRO [Concomitant]
     Dosage: 10 MG, 3,QHS
     Route: 048
     Dates: start: 20041130
  2. NEURONTIN [Concomitant]
     Dosage: 300 MG,1 Q AM, 2 QHS
     Route: 048
     Dates: start: 20041130
  3. KLONOPIN [Concomitant]
     Dosage: 1 MG BID, EXCEPT WED AND SAT TAKE QD
     Route: 048
     Dates: start: 20041130
  4. DETROL LA [Concomitant]
     Route: 048
     Dates: start: 20070108
  5. NEURONTIN [Concomitant]
  6. ACETAMINOPHEN [Concomitant]
     Dates: start: 20050811
  7. SEROQUEL [Suspect]
     Indication: ANXIETY
     Dosage: 200 - 300 MG
     Route: 048
     Dates: start: 20020101, end: 20050101
  8. SEROQUEL [Suspect]
     Dosage: 100 MG
     Route: 048
     Dates: start: 20050907
  9. RISPERDAL [Concomitant]
  10. FERROUS SULFATE TAB [Concomitant]
     Dates: start: 20051003
  11. SEROQUEL [Suspect]
     Dosage: 200-300 MG
     Route: 048
     Dates: start: 20041130
  12. VIVACTIL [Concomitant]
     Indication: BIPOLAR DISORDER
     Route: 048
     Dates: start: 20041130
  13. LOXITANE [Concomitant]
     Route: 048
     Dates: start: 20041130
  14. AVANDIA [Concomitant]
     Dates: start: 20051003
  15. SEROQUEL [Suspect]
     Indication: ILL-DEFINED DISORDER
     Dosage: 200 - 300 MG
     Route: 048
     Dates: start: 20020101, end: 20050101
  16. AMARYL [Concomitant]
     Dates: start: 20051003
  17. SEROQUEL [Suspect]
     Dosage: 200-300 MG
     Route: 048
     Dates: start: 20041130
  18. SEROQUEL [Suspect]
     Dosage: 100 MG
     Route: 048
     Dates: start: 20050907
  19. EFFEXOR [Concomitant]
  20. WELLBUTRIN [Concomitant]
  21. METFORMIN HCL [Concomitant]
     Dates: start: 20051003
  22. CYMBALTA [Concomitant]
     Dates: start: 20051003

REACTIONS (5)
  - TARDIVE DYSKINESIA [None]
  - DYSKINESIA [None]
  - TYPE 2 DIABETES MELLITUS [None]
  - DIABETES MELLITUS [None]
  - BACK DISORDER [None]
